FAERS Safety Report 15028256 (Version 1)
Quarter: 2018Q2

REPORT INFORMATION
  Report Type: Spontaneous
  Country: US (occurrence: US)
  Receive Date: 20180526
  Receipt Date: 20180526
  Transmission Date: 20180711
  Serious: Yes (Hospitalization)
  Sender: FDA-Public Use
  Company Number: None

PATIENT
  Age: 74 Year
  Sex: Male
  Weight: 146.5 kg

DRUGS (2)
  1. LEUPROLIDE ACETATE. [Suspect]
     Active Substance: LEUPROLIDE ACETATE
     Dates: end: 20170825
  2. CASODEX [Suspect]
     Active Substance: BICALUTAMIDE
     Dates: end: 20170928

REACTIONS (1)
  - Encephalopathy [None]

NARRATIVE: CASE EVENT DATE: 20170929
